FAERS Safety Report 13520015 (Version 1)
Quarter: 2017Q2

REPORT INFORMATION
  Report Type: Report from Study
  Country: None (occurrence: DE)
  Receive Date: 20170506
  Receipt Date: 20170506
  Transmission Date: 20170830
  Serious: Yes (Hospitalization, Other)
  Sender: FDA-Public Use
  Company Number: DE-ABBVIE-17K-062-1961393-00

PATIENT
  Age: 55 Year
  Sex: Male

DRUGS (2)
  1. HUMIRA [Suspect]
     Active Substance: ADALIMUMAB
     Indication: CROHN^S DISEASE
     Route: 058
     Dates: end: 20170327
  2. HUMIRA [Suspect]
     Active Substance: ADALIMUMAB
     Indication: CROHN^S DISEASE
     Route: 058
     Dates: start: 20160815

REACTIONS (8)
  - Cardiac output decreased [Not Recovered/Not Resolved]
  - Dyspnoea [Not Recovered/Not Resolved]
  - Coronary artery insufficiency [Not Recovered/Not Resolved]
  - Pulmonary embolism [Unknown]
  - Impaired work ability [Not Recovered/Not Resolved]
  - Cardiac valve disease [Not Recovered/Not Resolved]
  - Heart valve incompetence [Not Recovered/Not Resolved]
  - Arrhythmia [Not Recovered/Not Resolved]

NARRATIVE: CASE EVENT DATE: 20170320
